FAERS Safety Report 7204400-6 (Version None)
Quarter: 2010Q4

REPORT INFORMATION
  Report Type: 
  Country: None (occurrence: None)
  Receive Date: 20101220
  Receipt Date: 20101208
  Transmission Date: 20110411
  Serious: Yes (Hospitalization)
  Sender: FDA-Public Use
  Company Number: URSO-2010-150

PATIENT
  Age: 81 Year
  Sex: Female

DRUGS (3)
  1. URSODIOL [Suspect]
     Indication: HEPATIC FUNCTION ABNORMAL
     Dosage: 900 MG ORAL
     Route: 048
     Dates: start: 20100712, end: 20101125
  2. LASIX [Concomitant]
  3. WARFARIN (WARARIN POTASSIUM) [Concomitant]

REACTIONS (2)
  - DRUG ERUPTION [None]
  - LYMPHOCYTE STIMULATION TEST POSITIVE [None]
